FAERS Safety Report 9468823 (Version 4)
Quarter: 2013Q3

REPORT INFORMATION
  Report Type: Spontaneous
  Country: IT (occurrence: IT)
  Receive Date: 20130821
  Receipt Date: 20130917
  Transmission Date: 20140515
  Serious: Yes (Hospitalization, Other)
  Sender: FDA-Public Use
  Company Number: IT-ASTRAZENECA-2013SE63383

PATIENT
  Age: 28822 Day
  Sex: Male

DRUGS (12)
  1. SEROQUEL [Suspect]
     Route: 048
  2. SEROQUEL [Suspect]
     Route: 048
     Dates: start: 20130729, end: 20130729
  3. DEPAKIN [Suspect]
     Route: 048
     Dates: start: 20130729, end: 20130729
  4. CLOPIXOL [Suspect]
     Dosage: 20 MG/ML, 10 GTT ONCE/SINGLE ADMINISTRATION
     Route: 048
     Dates: start: 20130729, end: 20130729
  5. FLUCONAZOLE [Concomitant]
  6. PANTOPRAZOLE [Concomitant]
  7. FOLINA [Concomitant]
  8. DIBASE [Concomitant]
     Dosage: 10,000 IU/ML
     Route: 048
  9. DOBETIN [Concomitant]
     Dosage: 1000 MCG/ML
  10. SIRIO [Concomitant]
     Dosage: 12.5 MG + 125 MG
  11. COMTAN [Concomitant]
  12. MIRAPEXIN [Concomitant]

REACTIONS (16)
  - Accidental overdose [Unknown]
  - Electrocardiogram QT prolonged [Recovering/Resolving]
  - Sopor [Recovering/Resolving]
  - Haematemesis [Unknown]
  - Melaena [Unknown]
  - Fungal oesophagitis [Unknown]
  - Gastrooesophageal sphincter insufficiency [Unknown]
  - Gastrointestinal mucosal disorder [Unknown]
  - Duodenal ulcer [Unknown]
  - Urinary tract infection [Unknown]
  - Microcytic anaemia [Unknown]
  - Cerebrovascular disorder [Unknown]
  - Parkinson^s disease [Unknown]
  - Cognitive disorder [Unknown]
  - Urinary retention [Unknown]
  - Wrong patient received medication [Unknown]
